FAERS Safety Report 23687809 (Version 1)
Quarter: 2024Q1

REPORT INFORMATION
  Report Type: Spontaneous
  Country: US (occurrence: US)
  Receive Date: 20240329
  Receipt Date: 20240329
  Transmission Date: 20240410
  Serious: No
  Sender: FDA-Public Use
  Company Number: US-TEVA-VS-3139165

PATIENT
  Age: 6 Year
  Sex: Male

DRUGS (1)
  1. AMOXICILLIN [Suspect]
     Active Substance: AMOXICILLIN
     Indication: Ear infection
     Dosage: 400/5 MG/ML
     Route: 065

REACTIONS (4)
  - Eye swelling [Recovered/Resolved]
  - Oral mucosal erythema [Recovered/Resolved]
  - Erythema [Recovered/Resolved with Sequelae]
  - Pharyngeal swelling [Recovered/Resolved]

NARRATIVE: CASE EVENT DATE: 20231102
